APPROVED DRUG PRODUCT: HYDROCORTISONE
Active Ingredient: HYDROCORTISONE
Strength: 5MG
Dosage Form/Route: TABLET;ORAL
Application: A040761 | Product #001
Applicant: STRIDES PHARMA INTERNATIONAL AG
Approved: Jul 16, 2007 | RLD: No | RS: No | Type: DISCN